FAERS Safety Report 22607553 (Version 1)
Quarter: 2023Q2

REPORT INFORMATION
  Report Type: Report from Study
  Country: CA (occurrence: CA)
  Receive Date: 20230616
  Receipt Date: 20230616
  Transmission Date: 20230721
  Serious: Yes (Other)
  Sender: FDA-Public Use
  Company Number: CA-JNJFOC-20230359017

PATIENT
  Age: 13 Year
  Sex: Male
  Weight: 53 kg

DRUGS (1)
  1. REMICADE [Suspect]
     Active Substance: INFLIXIMAB
     Indication: Crohn^s disease
     Dosage: ON 04-MAY-2023, THE PATIENT RECEIVED 33RD INFUSION OF INFLIXIMAB, RECOMBINANT OF DOSE 300 MG AND COM
     Route: 042
     Dates: start: 20191205

REACTIONS (5)
  - Crohn^s disease [Not Recovered/Not Resolved]
  - Faeces discoloured [Recovered/Resolved]
  - Asthenia [Unknown]
  - Decreased appetite [Unknown]
  - Frequent bowel movements [Recovered/Resolved]

NARRATIVE: CASE EVENT DATE: 20230301
